FAERS Safety Report 5873126-3 (Version None)
Quarter: 2008Q3

REPORT INFORMATION
  Report Type: 
  Country: None (occurrence: None)
  Receive Date: 20080908
  Receipt Date: 20080903
  Transmission Date: 20090109
  Serious: Yes (Other)
  Sender: FDA-Public Use
  Company Number: JP-BRISTOL-MYERS SQUIBB COMPANY-14243968

PATIENT
  Age: 74 Year
  Sex: Male

DRUGS (2)
  1. PARAPLATIN [Suspect]
     Indication: HYPOPHARYNGEAL CANCER
     Route: 041
     Dates: start: 20061001, end: 20061101
  2. RADIATION THERAPY [Suspect]
     Indication: HYPOPHARYNGEAL CANCER
     Dosage: 1 DOSAGE FORM = 60 GY

REACTIONS (1)
  - MYELODYSPLASTIC SYNDROME [None]
